FAERS Safety Report 4754764-8 (Version None)
Quarter: 2005Q3

REPORT INFORMATION
  Report Type: 
  Country: None (occurrence: None)
  Receive Date: 20050825
  Receipt Date: 20050815
  Transmission Date: 20060218
  Serious: Yes (Hospitalization)
  Sender: FDA-Public Use
  Company Number: 2005084445

PATIENT
  Age: 75 Year
  Sex: Male
  Weight: 105 kg

DRUGS (2)
  1. LYRICA [Suspect]
     Indication: DIABETIC NEUROPATHY
     Dosage: 150 MG (75 MG, 2 IN 1 D), ORAL
     Route: 048
     Dates: start: 20050501, end: 20050518
  2. FALITHROM (PHENPROCOUMON) [Concomitant]

REACTIONS (4)
  - HAEMORRHAGIC DIATHESIS [None]
  - INTERNATIONAL NORMALISED RATIO INCREASED [None]
  - MALAISE [None]
  - PROTHROMBIN TIME PROLONGED [None]
